FAERS Safety Report 5615102-1 (Version None)
Quarter: 2008Q1

REPORT INFORMATION
  Report Type: 
  Country: None (occurrence: None)
  Receive Date: 20080206
  Receipt Date: 20070510
  Transmission Date: 20080703
  Serious: No
  Sender: FDA-Public Use
  Company Number: A0649267A

PATIENT
  Age: 83 Year
  Sex: Male
  Weight: 93 kg

DRUGS (10)
  1. ARIXTRA [Suspect]
     Dosage: 2.5MG SINGLE DOSE
     Route: 042
     Dates: start: 20070430, end: 20070430
  2. CELEXA [Concomitant]
  3. COREG [Concomitant]
  4. ALPHAGAN P [Concomitant]
  5. COSOPT [Concomitant]
  6. VIT C [Concomitant]
  7. TERAZOSIN HCL [Concomitant]
  8. MAXIPIME [Concomitant]
  9. AMIKACIN [Concomitant]
  10. ARIXTRA [Concomitant]
     Route: 058
     Dates: start: 20070423, end: 20070430

REACTIONS (1)
  - INCORRECT ROUTE OF DRUG ADMINISTRATION [None]
